FAERS Safety Report 9342429 (Version 2)
Quarter: 2013Q3

REPORT INFORMATION
  Report Type: Spontaneous
  Country: JP (occurrence: JP)
  Receive Date: 20130611
  Receipt Date: 20130716
  Transmission Date: 20140515
  Serious: Yes (Other)
  Sender: FDA-Public Use
  Company Number: PHHY2013JP058222

PATIENT
  Age: 30 Year
  Sex: Female
  Weight: 33 kg

DRUGS (3)
  1. BROMAZEPAM [Suspect]
     Dosage: 5 MG, UNK
     Route: 048
  2. OLANZAPINE [Suspect]
  3. SULPRIDE [Suspect]
     Dosage: 100 MG, UNK
     Route: 048

REACTIONS (3)
  - Road traffic accident [Unknown]
  - Impaired driving ability [Unknown]
  - Somnolence [Unknown]
